FAERS Safety Report 16041434 (Version 1)
Quarter: 2019Q1

REPORT INFORMATION
  Report Type: Spontaneous
  Country: US (occurrence: US)
  Receive Date: 20190306
  Receipt Date: 20190306
  Transmission Date: 20190418
  Serious: No
  Sender: FDA-Public Use
  Company Number: US-AKORN PHARMACEUTICALS-2018AKN02108

PATIENT
  Age: 16 Year
  Sex: Male
  Weight: 55.4 kg

DRUGS (6)
  1. CLINDAMYCIN PHOSPHATE SOLUTION [Concomitant]
  2. LACTAID [Concomitant]
     Active Substance: LACTASE
  3. RETIN-A MICRO [Concomitant]
     Active Substance: TRETINOIN
  4. TYLENOL [Concomitant]
     Active Substance: ACETAMINOPHEN
  5. MYORISAN [Suspect]
     Active Substance: ISOTRETINOIN
     Indication: ACNE
     Dosage: 40 MG, 1X/DAY
     Route: 048
     Dates: start: 20181126, end: 20181211
  6. DUAC [Concomitant]
     Active Substance: BENZOYL PEROXIDE\CLINDAMYCIN PHOSPHATE

REACTIONS (2)
  - Off label use [Recovered/Resolved]
  - Back pain [Recovered/Resolved]

NARRATIVE: CASE EVENT DATE: 20181126
